FAERS Safety Report 7339484-8 (Version None)
Quarter: 2011Q1

REPORT INFORMATION
  Report Type: 
  Country: None (occurrence: None)
  Receive Date: 20110308
  Receipt Date: 20110112
  Transmission Date: 20110831
  Serious: Yes (Other)
  Sender: FDA-Public Use
  Company Number: US-AMGEN-USASP2011002203

PATIENT
  Sex: Male

DRUGS (17)
  1. FINASTERIDE [Concomitant]
  2. VITAMIN C                          /00008001/ [Concomitant]
  3. NEXIUM [Concomitant]
  4. ALLOPURINOL [Concomitant]
  5. ULTRAM [Concomitant]
  6. PROLIA [Suspect]
     Indication: OSTEOPOROSIS
     Dosage: 60 MG, Q6MO
     Dates: start: 20101201, end: 20101201
  7. RAMIPRIL [Concomitant]
  8. VITAMIN B12                        /00056201/ [Concomitant]
  9. REMERON [Concomitant]
  10. METHOTREXATE [Concomitant]
  11. CALCIUM [Concomitant]
     Dosage: 800 MG, QD
  12. VITAMIN A [Concomitant]
     Dosage: 600 IU, QD
  13. FOLIC ACID [Concomitant]
  14. ASPIRIN [Concomitant]
  15. ZETIA [Concomitant]
  16. COLCHICINE [Concomitant]
  17. PLENDIL [Concomitant]

REACTIONS (3)
  - DERMATITIS [None]
  - DIARRHOEA [None]
  - HYPOCALCAEMIA [None]
